FAERS Safety Report 4705101-6 (Version None)
Quarter: 2005Q3

REPORT INFORMATION
  Report Type: 
  Country: None (occurrence: None)
  Receive Date: 20050701
  Receipt Date: 20050622
  Transmission Date: 20060218
  Serious: Yes (Other)
  Sender: FDA-Public Use
  Company Number: GB-JNJFOC-20050506276

PATIENT
  Sex: Male

DRUGS (7)
  1. RISPERDAL CONSTA [Suspect]
     Indication: DRUG USE FOR UNKNOWN INDICATION
     Route: 030
  2. GLICAZIDE [Concomitant]
     Dosage: MANE
  3. VITAMIN B CO STRONG [Concomitant]
     Indication: ALCOHOL DETOXIFICATION
     Dosage: DOSE = 1 TABLET
  4. THIAMINE [Concomitant]
     Indication: ALCOHOL DETOXIFICATION
  5. FRUSEMIDE [Concomitant]
     Dosage: MANE
  6. SPIRONOLACTONE [Concomitant]
     Dosage: MANE
  7. OMEPRAZOLE [Concomitant]
     Indication: VARICES OESOPHAGEAL
     Dosage: MANE

REACTIONS (2)
  - HEPATIC NEOPLASM [None]
  - LIVER FUNCTION TEST ABNORMAL [None]
